FAERS Safety Report 21925476 (Version 2)
Quarter: 2023Q1

REPORT INFORMATION
  Report Type: Spontaneous
  Country: FR (occurrence: FR)
  Receive Date: 20230130
  Receipt Date: 20230207
  Transmission Date: 20230418
  Serious: Yes (Other)
  Sender: FDA-Public Use
  Company Number: FR-002147023-NVSC2023FR019126

PATIENT
  Age: 50 Year
  Sex: Female
  Weight: 69 kg

DRUGS (1)
  1. KISQALI [Suspect]
     Active Substance: RIBOCICLIB
     Indication: Breast cancer metastatic
     Dosage: 600 MG, QD
     Route: 048
     Dates: start: 20220704, end: 20221010

REACTIONS (4)
  - Renal failure [Recovering/Resolving]
  - Leukopenia [Unknown]
  - Leukocyturia [Unknown]
  - Nephropathy [Unknown]

NARRATIVE: CASE EVENT DATE: 20221010
